FAERS Safety Report 6849249-9 (Version None)
Quarter: 2010Q3

REPORT INFORMATION
  Report Type: 
  Country: None (occurrence: None)
  Receive Date: 20100716
  Receipt Date: 20071213
  Transmission Date: 20110219
  Serious: Yes (Hospitalization, Other)
  Sender: FDA-Public Use
  Company Number: US-PFIZER INC-2007081256

PATIENT
  Sex: Female
  Weight: 68 kg

DRUGS (4)
  1. CHANTIX [Suspect]
     Indication: SMOKING CESSATION THERAPY
     Route: 048
     Dates: start: 20070918
  2. PROPOXYPHENE HCL [Concomitant]
  3. ADIPEX [Concomitant]
  4. PRANDIN [Concomitant]

REACTIONS (1)
  - CHEST PAIN [None]
